FAERS Safety Report 20986861 (Version 1)
Quarter: 2022Q2

REPORT INFORMATION
  Report Type: Spontaneous
  Country: US (occurrence: US)
  Receive Date: 20220621
  Receipt Date: 20220621
  Transmission Date: 20220720
  Serious: No
  Sender: FDA-Public Use
  Company Number: US-NOVARTISTESTPH-NVSC2022US138437

PATIENT
  Sex: Female

DRUGS (3)
  1. LOSARTAN [Suspect]
     Active Substance: LOSARTAN
     Indication: Product used for unknown indication
     Dosage: 50 MG, BID
     Route: 065
  2. LOSARTAN [Suspect]
     Active Substance: LOSARTAN
     Dosage: 25 MG, BID
     Route: 065
  3. TYLENOL [Concomitant]
     Active Substance: ACETAMINOPHEN
     Indication: Oropharyngeal pain
     Dosage: 2 DOSAGE FORM, Q6H (TABLETS)
     Route: 065

REACTIONS (2)
  - Taste disorder [Unknown]
  - Hypotension [Unknown]
